FAERS Safety Report 4843205-8 (Version None)
Quarter: 2005Q4

REPORT INFORMATION
  Report Type: 
  Country: None (occurrence: None)
  Receive Date: 20051027
  Receipt Date: 20050224
  Transmission Date: 20060501
  Serious: Yes (Other)
  Sender: FDA-Public Use
  Company Number: HQWYE775302MAR05

PATIENT
  Age: 64 Year
  Sex: Female

DRUGS (3)
  1. PREMARIN [Suspect]
  2. CENESTIN [Suspect]
  3. ESTRADIOL [Suspect]

REACTIONS (1)
  - OVARIAN CANCER [None]
